FAERS Safety Report 6423758-9 (Version None)
Quarter: 2009Q4

REPORT INFORMATION
  Report Type: 
  Country: None (occurrence: None)
  Receive Date: 20091030
  Receipt Date: 20091030
  Transmission Date: 20100525
  Serious: No
  Sender: FDA-Public Use
  Company Number: None

PATIENT
  Age: 65 Year
  Sex: Male
  Weight: 109.5 kg

DRUGS (1)
  1. AMIODARONE HCL [Suspect]
     Dosage: 200 MG EVERY DAY PO
     Route: 048
     Dates: start: 20060428, end: 20090130

REACTIONS (2)
  - LUNG DISORDER [None]
  - PULMONARY FUNCTION TEST DECREASED [None]
